FAERS Safety Report 17460254 (Version 1)
Quarter: 2020Q1

REPORT INFORMATION
  Report Type: Spontaneous
  Country: US (occurrence: US)
  Receive Date: 20200213
  Receipt Date: 20200213
  Transmission Date: 20200409
  Serious: No
  Sender: FDA-Public Use
  Company Number: None

PATIENT
  Age: 52 Year
  Sex: Female

DRUGS (1)
  1. SOLU-MEDROL [Suspect]
     Active Substance: METHYLPREDNISOLONE SODIUM SUCCINATE
     Dosage: ?          OTHER DOSE:NOT AVAILABLE;?
     Route: 042
     Dates: start: 202002

REACTIONS (4)
  - Skin tightness [None]
  - Asthenia [None]
  - Pain of skin [None]
  - Gait disturbance [None]

NARRATIVE: CASE EVENT DATE: 20200213
